FAERS Safety Report 5671546-3 (Version None)
Quarter: 2008Q1

REPORT INFORMATION
  Report Type: 
  Country: None (occurrence: None)
  Receive Date: 20080318
  Receipt Date: 20080310
  Transmission Date: 20080703
  Serious: Yes (Disabling, Other)
  Sender: FDA-Public Use
  Company Number: JP-BOEHRINGER INGELHEIM GMBH, GERMANY-2006-BP-01569YA

PATIENT
  Sex: Male
  Weight: 53 kg

DRUGS (8)
  1. HARNAL [Suspect]
     Indication: BENIGN PROSTATIC HYPERPLASIA
     Route: 048
     Dates: start: 20030423
  2. ASPIRIN [Concomitant]
     Dates: start: 20020101
  3. GLIMICRON [Concomitant]
     Dates: start: 20020101
  4. BASEN [Concomitant]
     Dates: start: 20020101
  5. JUVELA NICOTINATE [Concomitant]
     Dates: start: 20020101
  6. THEO-DUR [Concomitant]
     Dates: start: 20020101
  7. DIAZEPAM [Concomitant]
     Indication: TREMOR
  8. FLUMETHOLON [Concomitant]

REACTIONS (2)
  - CATARACT NUCLEAR [None]
  - FLOPPY IRIS SYNDROME [None]
